FAERS Safety Report 18146909 (Version 3)
Quarter: 2020Q4

REPORT INFORMATION
  Report Type: Report from Study
  Country: CA (occurrence: CA)
  Receive Date: 20200813
  Receipt Date: 20201202
  Transmission Date: 20210113
  Serious: Yes (Hospitalization)
  Sender: FDA-Public Use
  Company Number: CA-BAUSCH-BL-2020-017933

PATIENT
  Age: 58 Year
  Sex: Male

DRUGS (2)
  1. SILIQ [Suspect]
     Active Substance: BRODALUMAB
     Indication: PSORIASIS
     Dosage: DOSAGE AND STRENGTH: 210MG/1.5ML (WEEK 0, 1, 2)
     Route: 058
     Dates: start: 20200618, end: 202006
  2. SILIQ [Suspect]
     Active Substance: BRODALUMAB
     Dosage: DOSAGE AND STRENGTH: 210MG/1.5ML
     Route: 058
     Dates: start: 2020, end: 2020

REACTIONS (10)
  - Abdominal distension [Unknown]
  - Arthralgia [Not Recovered/Not Resolved]
  - White blood cell count increased [Unknown]
  - General physical health deterioration [Unknown]
  - Ill-defined disorder [Unknown]
  - Feeling abnormal [Unknown]
  - Nausea [Not Recovered/Not Resolved]
  - Stress [Not Recovered/Not Resolved]
  - Vomiting [Unknown]
  - Fatigue [Not Recovered/Not Resolved]

NARRATIVE: CASE EVENT DATE: 2020
